FAERS Safety Report 12504182 (Version 1)
Quarter: 2016Q2

REPORT INFORMATION
  Report Type: Spontaneous
  Country: SI (occurrence: SI)
  Receive Date: 20160628
  Receipt Date: 20160628
  Transmission Date: 20160815
  Serious: Yes (Hospitalization, Other)
  Sender: FDA-Public Use
  Company Number: SI-IPCA LABORATORIES LIMITED-IPC201606-000529

PATIENT
  Age: 76 Year
  Sex: Female

DRUGS (1)
  1. CHLOROQUINE PHOSPHATE. [Suspect]
     Active Substance: CHLOROQUINE PHOSPHATE

REACTIONS (7)
  - Right-to-left cardiac shunt [Recovered/Resolved]
  - Dyspnoea [Recovered/Resolved]
  - Cyanosis central [Recovered/Resolved]
  - Restrictive cardiomyopathy [Recovered/Resolved]
  - Central venous pressure increased [Recovered/Resolved]
  - Pleural effusion [Recovered/Resolved]
  - Hypoxia [Recovered/Resolved]
